FAERS Safety Report 8502635-3 (Version None)
Quarter: 2012Q3

REPORT INFORMATION
  Report Type: 
  Country: None (occurrence: None)
  Receive Date: 20120711
  Receipt Date: 20120626
  Transmission Date: 20120928
  Serious: Yes (Hospitalization)
  Sender: FDA-Public Use
  Company Number: FR-PFIZER INC-2012161122

PATIENT
  Age: 53 Year
  Sex: Male

DRUGS (6)
  1. HEPARIN [Concomitant]
     Dosage: UNK
     Dates: start: 20120601
  2. GENTAMICIN [Suspect]
     Indication: PNEUMONIA
     Dosage: 400 MG, DAILY
     Route: 042
     Dates: start: 20120525, end: 20120527
  3. ERYTHROMYCIN STEARATE [Suspect]
     Indication: PNEUMONIA
     Dosage: 600 MG, DAILY
     Route: 042
     Dates: start: 20120528, end: 20120530
  4. CLADRIBINE [Concomitant]
     Dosage: UNK
     Dates: start: 20120602
  5. AUGMENTIN '125' [Suspect]
     Indication: PNEUMONIA
     Dosage: 6 G, DAILY
     Route: 042
     Dates: start: 20120528, end: 20120608
  6. VANCOMYCIN HYCHLORIDE [Suspect]
     Indication: PNEUMONIA
     Dosage: 2 G, DAILY
     Route: 042
     Dates: start: 20120525, end: 20120527

REACTIONS (6)
  - RASH PUSTULAR [None]
  - OEDEMA PERIPHERAL [None]
  - PURPURA [None]
  - RASH MACULO-PAPULAR [None]
  - INFLAMMATION [None]
  - PYREXIA [None]
